FAERS Safety Report 8074465-0 (Version None)
Quarter: 2012Q1

REPORT INFORMATION
  Report Type: 
  Country: None (occurrence: None)
  Receive Date: 20120126
  Receipt Date: 20120125
  Transmission Date: 20120608
  Serious: Yes (Other)
  Sender: FDA-Public Use
  Company Number: US-PFIZER INC-2012021094

PATIENT
  Sex: Female

DRUGS (3)
  1. ZOLOFT [Suspect]
     Indication: NERVOUSNESS
     Dosage: 100 MG, 1X/DAY
     Route: 048
  2. GLIPIZIDE [Concomitant]
     Dosage: UNK
  3. BYETTA [Concomitant]
     Dosage: UNK

REACTIONS (3)
  - WEIGHT INCREASED [None]
  - DIABETES MELLITUS [None]
  - MALAISE [None]
